FAERS Safety Report 16808834 (Version 1)
Quarter: 2019Q3

REPORT INFORMATION
  Report Type: Spontaneous
  Country: US (occurrence: US)
  Receive Date: 20190916
  Receipt Date: 20190916
  Transmission Date: 20191005
  Serious: No
  Sender: FDA-Public Use
  Company Number: US-AUROBINDO-AUR-APU-2018-049773

PATIENT

DRUGS (2)
  1. PAROXETINE TABLET [Suspect]
     Active Substance: PAROXETINE
     Indication: BACK PAIN
     Dosage: 2 TABLETS PER DAY
     Route: 065
     Dates: start: 201804
  2. RISPERIDONE. [Concomitant]
     Active Substance: RISPERIDONE
     Indication: PRODUCT USED FOR UNKNOWN INDICATION
     Route: 065

REACTIONS (5)
  - Weight increased [Unknown]
  - Chest pain [Unknown]
  - Cough [Unknown]
  - Tremor [Unknown]
  - Dizziness [Unknown]

NARRATIVE: CASE EVENT DATE: 20180504
